FAERS Safety Report 11800637 (Version 1)
Quarter: 2015Q4

REPORT INFORMATION
  Report Type: Report from Study
  Country: JP (occurrence: JP)
  Receive Date: 20151204
  Receipt Date: 20151204
  Transmission Date: 20160305
  Serious: Yes (Other)
  Sender: FDA-Public Use
  Company Number: JP-ROCHE-1671345

PATIENT

DRUGS (4)
  1. BEVACIZUMAB [Suspect]
     Active Substance: BEVACIZUMAB
     Indication: COLORECTAL CANCER
     Dosage: ON DAY 1
     Route: 065
  2. DEXAMETHASONE. [Concomitant]
     Active Substance: DEXAMETHASONE
     Route: 042
  3. CAPECITABINE. [Suspect]
     Active Substance: CAPECITABINE
     Indication: COLORECTAL CANCER
     Dosage: ON DAY 1-14, EVERY 3 WEEKS
     Route: 065
  4. OXALIPLATIN. [Suspect]
     Active Substance: OXALIPLATIN
     Indication: COLORECTAL CANCER
     Route: 065

REACTIONS (11)
  - Fatigue [Unknown]
  - Ileus [Unknown]
  - Diarrhoea [Unknown]
  - Neutropenia [Unknown]
  - Neuropathy peripheral [Unknown]
  - Thrombocytopenia [Unknown]
  - Pneumonia [Unknown]
  - Cholangitis [Unknown]
  - Nausea [Unknown]
  - Vomiting [Unknown]
  - Aspartate aminotransferase abnormal [Unknown]
